FAERS Safety Report 6671982-2 (Version None)
Quarter: 2010Q2

REPORT INFORMATION
  Report Type: 
  Country: None (occurrence: None)
  Receive Date: 20100407
  Receipt Date: 20100326
  Transmission Date: 20101027
  Serious: Yes (Life-Threatening, Hospitalization)
  Sender: FDA-Public Use
  Company Number: IT-GENENTECH-299283

PATIENT
  Sex: Male

DRUGS (3)
  1. LUCENTIS [Suspect]
     Indication: MACULOPATHY
     Dosage: 0.5 MG, UNK
     Route: 031
     Dates: start: 20090617
  2. LUCENTIS [Suspect]
     Dosage: 0.5 MG, UNK
     Route: 031
     Dates: start: 20091203
  3. ANTIBIOTICS (NOT SPECIFIED) [Concomitant]
     Indication: DRUG USE FOR UNKNOWN INDICATION

REACTIONS (3)
  - ACUTE MYOCARDIAL INFARCTION [None]
  - FEBRILE INFECTION [None]
  - LEFT VENTRICULAR DYSFUNCTION [None]
